FAERS Safety Report 7841444-5 (Version None)
Quarter: 2011Q4

REPORT INFORMATION
  Report Type: 
  Country: None (occurrence: None)
  Receive Date: 20111025
  Receipt Date: 20111017
  Transmission Date: 20120403
  Serious: Yes (Life-Threatening, Other)
  Sender: FDA-Public Use
  Company Number: AU-JNJFOC-20111008368

PATIENT
  Sex: Female

DRUGS (6)
  1. LYRICA [Concomitant]
     Route: 065
     Dates: start: 20090612
  2. BUPRENORPHINE [Concomitant]
     Route: 065
  3. ACETAMINOPHEN AND CODEINE PHOSPHATE [Concomitant]
     Route: 065
  4. TOPAMAX [Suspect]
     Indication: PRODUCT USED FOR UNKNOWN INDICATION
     Route: 048
     Dates: start: 20090612, end: 20090612
  5. CRESTOR [Concomitant]
     Route: 065
  6. MOBIC [Concomitant]
     Route: 065

REACTIONS (8)
  - RASH [None]
  - PYREXIA [None]
  - EYE PRURITUS [None]
  - SWELLING FACE [None]
  - PRURITUS [None]
  - EYELID OEDEMA [None]
  - ARTHRALGIA [None]
  - ABDOMINAL PAIN UPPER [None]
